FAERS Safety Report 6109805-2 (Version None)
Quarter: 2009Q1

REPORT INFORMATION
  Report Type: 
  Country: None (occurrence: None)
  Receive Date: 20090310
  Receipt Date: 20080527
  Transmission Date: 20090719
  Serious: No
  Sender: FDA-Public Use
  Company Number: A0729615A

PATIENT
  Age: 54 Year
  Sex: Female

DRUGS (2)
  1. NICORETTE (MINT) [Suspect]
  2. NICORETTE [Suspect]

REACTIONS (7)
  - FACIAL PAIN [None]
  - GLOSSITIS [None]
  - GLOSSODYNIA [None]
  - INTENTIONAL DRUG MISUSE [None]
  - PAIN [None]
  - SWOLLEN TONGUE [None]
  - TONGUE DISORDER [None]
